FAERS Safety Report 12557313 (Version 1)
Quarter: 2016Q3

REPORT INFORMATION
  Report Type: Spontaneous
  Country: US (occurrence: US)
  Receive Date: 20160714
  Receipt Date: 20160714
  Transmission Date: 20161109
  Serious: No
  Sender: FDA-Public Use
  Company Number: US-MANNKIND CORPORATION-2016MK000294

PATIENT
  Sex: Female

DRUGS (3)
  1. AFREZZA [Suspect]
     Active Substance: INSULIN HUMAN
     Indication: DIABETES MELLITUS
  2. HUMALOG [Concomitant]
     Active Substance: INSULIN LISPRO
     Indication: PRODUCT USED FOR UNKNOWN INDICATION
  3. AFREZZA [Suspect]
     Active Substance: INSULIN HUMAN

REACTIONS (1)
  - Drug ineffective [Unknown]

NARRATIVE: CASE EVENT DATE: 20160514
